FAERS Safety Report 6228834-1 (Version None)
Quarter: 2009Q2

REPORT INFORMATION
  Report Type: 
  Country: None (occurrence: None)
  Receive Date: 20090615
  Receipt Date: 20090609
  Transmission Date: 20091009
  Serious: No
  Sender: FDA-Public Use
  Company Number: US-B.I. PHARMACEUTICALS,INC./RIDGEFIELD-2009-BP-06534BP

PATIENT
  Sex: Female
  Weight: 49.9 kg

DRUGS (2)
  1. COMBIVENT [Suspect]
     Indication: CHRONIC OBSTRUCTIVE PULMONARY DISEASE
     Dosage: 8PUF
     Route: 055
  2. SINGULAIR [Concomitant]
     Dosage: 10MG

REACTIONS (1)
  - PRODUCT TASTE ABNORMAL [None]
